FAERS Safety Report 23214619 (Version 2)
Quarter: 2023Q4

REPORT INFORMATION
  Report Type: Spontaneous
  Country: US (occurrence: US)
  Receive Date: 20231121
  Receipt Date: 20231129
  Transmission Date: 20240110
  Serious: No
  Sender: FDA-Public Use
  Company Number: US-Dermavant-000865

PATIENT
  Sex: Female

DRUGS (2)
  1. TAPINAROF [Suspect]
     Active Substance: TAPINAROF
     Indication: Psoriasis
     Dosage: DOSAGE: 60G?APPLIED TO AREAS ALL OVER HER BODY, MOSTLY TO HER STOMACH AND BACK
     Route: 061
     Dates: start: 20230817, end: 20230822
  2. METOPROLOL [Concomitant]
     Active Substance: METOPROLOL

REACTIONS (1)
  - Pruritus [Recovered/Resolved]

NARRATIVE: CASE EVENT DATE: 20230801
